FAERS Safety Report 10884415 (Version 2)
Quarter: 2015Q2

REPORT INFORMATION
  Report Type: Report from Study
  Country: US (occurrence: US)
  Receive Date: 20150304
  Receipt Date: 20150520
  Transmission Date: 20150821
  Serious: Yes (Hospitalization, Other)
  Sender: FDA-Public Use
  Company Number: US-BRISTOL-MYERS SQUIBB COMPANY-BMS-2015-011289

PATIENT
  Age: 66 Year
  Sex: Female

DRUGS (2)
  1. BEVACIZUMAB [Concomitant]
     Active Substance: BEVACIZUMAB
     Indication: MALIGNANT MELANOMA
     Dosage: UNK; INDUCTION: DAY 1 OF CYCLES 1-4 )CYCLE=21 DAYS)
     Route: 042
     Dates: start: 20141218
  2. IPILIMUMAB [Suspect]
     Active Substance: IPILIMUMAB
     Indication: MALIGNANT MELANOMA
     Dosage: UNK; DAY 1 OF CYCLES 1-4 )CYCLE=21 DAYS)
     Route: 042
     Dates: start: 20141218

REACTIONS (3)
  - Pancreatitis [Not Recovered/Not Resolved]
  - Lipase increased [Recovered/Resolved]
  - Dehydration [Not Recovered/Not Resolved]

NARRATIVE: CASE EVENT DATE: 20150105
